FAERS Safety Report 5730438-1 (Version None)
Quarter: 2008Q2

REPORT INFORMATION
  Report Type: 
  Country: None (occurrence: None)
  Receive Date: 20080507
  Receipt Date: 20080428
  Transmission Date: 20081010
  Serious: Yes (Hospitalization)
  Sender: FDA-Public Use
  Company Number: US-AMGEN-QUU276790

PATIENT
  Sex: Female

DRUGS (2)
  1. ENBREL [Suspect]
     Indication: RHEUMATOID ARTHRITIS
     Route: 058
     Dates: start: 20070805
  2. METHOTREXATE [Concomitant]
     Route: 048

REACTIONS (2)
  - BLOOD POTASSIUM DECREASED [None]
  - NEPHROLITHIASIS [None]
